FAERS Safety Report 15302168 (Version 1)
Quarter: 2018Q3

REPORT INFORMATION
  Report Type: Spontaneous
  Country: US (occurrence: US)
  Receive Date: 20180821
  Receipt Date: 20180821
  Transmission Date: 20181010
  Serious: No
  Sender: FDA-Public Use
  Company Number: US-TARO-2018TAR00031

PATIENT
  Age: 78 Year
  Sex: Female
  Weight: 54.42 kg

DRUGS (4)
  1. WARFARIN SODIUM TABLETS USP 5MG [Suspect]
     Active Substance: WARFARIN SODIUM
     Indication: ATRIAL FIBRILLATION
     Dosage: 5 MG, ONCE AT 6 PM
     Route: 048
     Dates: start: 20180110, end: 20180110
  2. ALBUTEROL. [Concomitant]
     Active Substance: ALBUTEROL
  3. TYLENOL [Concomitant]
     Active Substance: ACETAMINOPHEN
  4. ROPINIROLE. [Concomitant]
     Active Substance: ROPINIROLE

REACTIONS (4)
  - Allergic reaction to excipient [Recovering/Resolving]
  - Dyspnoea [Recovering/Resolving]
  - Burning sensation [Recovering/Resolving]
  - Rash [Recovering/Resolving]

NARRATIVE: CASE EVENT DATE: 20180110
